FAERS Safety Report 5932156-3 (Version None)
Quarter: 2008Q4

REPORT INFORMATION
  Report Type: 
  Country: None (occurrence: None)
  Receive Date: 20081028
  Receipt Date: 20081013
  Transmission Date: 20090506
  Serious: Yes (Hospitalization, Other)
  Sender: FDA-Public Use
  Company Number: GB-JNJFOC-20080803607

PATIENT
  Sex: Female

DRUGS (10)
  1. INFLIXIMAB [Suspect]
     Dosage: WEEK 6
     Route: 042
  2. INFLIXIMAB [Suspect]
     Indication: JUVENILE ARTHRITIS
     Dosage: WEEK 2
     Route: 042
  3. INFLIXIMAB [Suspect]
     Indication: POLYARTHRITIS
     Dosage: WEEK 0
     Route: 042
  4. METHOTREXATE [Concomitant]
     Route: 058
  5. METHOTREXATE [Concomitant]
     Route: 058
  6. OMEPRAZOLE [Concomitant]
     Route: 048
  7. DICLOFENAC [Concomitant]
     Route: 048
  8. DICLOFENAC [Concomitant]
     Route: 048
  9. CHLORPHENIRAMINE MALEATE [Concomitant]
     Indication: PREMEDICATION
  10. HYDROCORTISONE [Concomitant]
     Indication: PREMEDICATION

REACTIONS (2)
  - ANAPHYLACTIC REACTION [None]
  - INFUSION RELATED REACTION [None]
